FAERS Safety Report 10794640 (Version 2)
Quarter: 2015Q1

REPORT INFORMATION
  Report Type: Report from Study
  Country: US (occurrence: US)
  Receive Date: 20150213
  Receipt Date: 20150313
  Transmission Date: 20150721
  Serious: Yes (Death)
  Sender: FDA-Public Use
  Company Number: US-AMGEN-USACT2015012907

PATIENT
  Age: 91 Year
  Sex: Male
  Weight: 79.37 kg

DRUGS (4)
  1. CARFILZOMIB [Suspect]
     Active Substance: CARFILZOMIB
     Indication: PLASMA CELL MYELOMA
     Dosage: 56 MG, UNK
     Route: 042
     Dates: start: 20141013
  2. LEVAQUIN [Concomitant]
     Active Substance: LEVOFLOXACIN
     Indication: UPPER RESPIRATORY TRACT INFECTION
     Dosage: 500 MG, UNK
     Dates: start: 20150203
  3. LEVAQUIN [Concomitant]
     Active Substance: LEVOFLOXACIN
     Indication: COUGH
  4. PANOBINOSTAT [Concomitant]
     Active Substance: PANOBINOSTAT
     Indication: PLASMA CELL MYELOMA
     Dosage: 15 MG, UNK
     Route: 048
     Dates: start: 20141013

REACTIONS (1)
  - Respiratory failure [Fatal]

NARRATIVE: CASE EVENT DATE: 20150206
